FAERS Safety Report 20194976 (Version 1)
Quarter: 2021Q4

REPORT INFORMATION
  Report Type: Spontaneous
  Country: US (occurrence: None)
  Receive Date: 20211216
  Receipt Date: 20211216
  Transmission Date: 20220304
  Serious: Yes (Other)
  Sender: FDA-Public Use
  Company Number: None

PATIENT
  Age: 58 Year
  Sex: Male
  Weight: 65.7 kg

DRUGS (8)
  1. IBRANCE [Suspect]
     Active Substance: PALBOCICLIB
     Indication: Breast cancer
     Dosage: FREQUENCY : DAILY;?
     Route: 048
     Dates: start: 20210320
  2. MYRBETRIQ [Concomitant]
     Active Substance: MIRABEGRON
  3. HYDROCODONE [Concomitant]
     Active Substance: HYDROCODONE
  4. OXYBUTYNIN [Concomitant]
     Active Substance: OXYBUTYNIN
  5. LETROZOLE [Concomitant]
     Active Substance: LETROZOLE
  6. cartia [Concomitant]
  7. PANTOPRAZOLE [Concomitant]
     Active Substance: PANTOPRAZOLE
  8. ALBUTEROL [Concomitant]
     Active Substance: ALBUTEROL

REACTIONS (2)
  - Colon operation [None]
  - Therapy interrupted [None]

NARRATIVE: CASE EVENT DATE: 20211216
